FAERS Safety Report 8485158-X (Version None)
Quarter: 2012Q3

REPORT INFORMATION
  Report Type: 
  Country: None (occurrence: None)
  Receive Date: 20120703
  Receipt Date: 20120627
  Transmission Date: 20120928
  Serious: Yes (Hospitalization, Other)
  Sender: FDA-Public Use
  Company Number: FR-PFIZER INC-2012154188

PATIENT
  Age: 75 Year
  Sex: Female

DRUGS (15)
  1. DOXORUBICIN HCL [Suspect]
     Indication: BREAST CANCER METASTATIC
     Dosage: 8 COURSES
     Route: 042
     Dates: start: 20071127, end: 20080624
  2. ARIMIDEX [Suspect]
     Indication: BREAST CANCER METASTATIC
     Dosage: 1 DF, 1X/DAY
     Route: 048
     Dates: start: 20080101, end: 20090201
  3. CYCLOPHOSPHAMIDE [Suspect]
     Dosage: UNK
     Dates: start: 20110802
  4. FASLODEX [Suspect]
     Indication: BREAST CANCER METASTATIC
     Dosage: UNK
     Route: 048
     Dates: start: 20070201, end: 20070501
  5. TAXOTERE [Suspect]
     Indication: BREAST CANCER METASTATIC
     Dosage: 3 CYCLES
     Route: 042
     Dates: start: 20050308, end: 20050419
  6. FEMARA [Suspect]
     Indication: BREAST CANCER METASTATIC
     Dosage: 1 DF, 1X/DAY
     Route: 048
     Dates: start: 20050401, end: 20061101
  7. XELODA [Suspect]
     Indication: BREAST CANCER METASTATIC
     Dosage: 4 CYCLES
     Route: 048
     Dates: start: 20070801, end: 20071101
  8. ESTRACYT [Suspect]
     Indication: BREAST CANCER METASTATIC
     Dosage: 2 DF, 2X/DAY
     Route: 048
     Dates: start: 20091203, end: 20110101
  9. DOXORUBICIN HCL [Suspect]
     Dosage: 9 COURSES
     Route: 042
     Dates: start: 20090219, end: 20091105
  10. CYCLOPHOSPHAMIDE [Suspect]
     Indication: BREAST CANCER METASTATIC
     Dosage: 4 CYCLES
     Route: 042
     Dates: start: 20041203, end: 20050202
  11. AROMASIN [Suspect]
     Indication: BREAST CANCER METASTATIC
     Dosage: 1 DF, 1X/DAY
     Route: 048
     Dates: start: 20061101, end: 20070201
  12. FLUOROURACIL [Suspect]
     Indication: BREAST CANCER METASTATIC
     Dosage: 4 CYCLES
     Route: 042
     Dates: start: 20041203, end: 20050202
  13. NAVELBINE [Suspect]
     Indication: BREAST CANCER METASTATIC
     Dosage: 90 MG, 4 COURSES, CYCLIC, DAY 1-8
     Route: 042
     Dates: start: 20070701, end: 20071101
  14. NAVOBAN [Suspect]
     Indication: BREAST CANCER METASTATIC
     Dosage: 4 CYCLES
     Route: 048
     Dates: start: 20070701, end: 20071101
  15. EPIRUBICIN HYDROCHLORIDE [Suspect]
     Indication: BREAST CANCER METASTATIC
     Dosage: 4 CYCLES
     Route: 042
     Dates: start: 20041203, end: 20050502

REACTIONS (1)
  - TONGUE NEOPLASM MALIGNANT STAGE UNSPECIFIED [None]
